FAERS Safety Report 6496643-4 (Version None)
Quarter: 2009Q4

REPORT INFORMATION
  Report Type: 
  Country: None (occurrence: None)
  Receive Date: 20091125
  Receipt Date: 20090707
  Transmission Date: 20100525
  Serious: Yes (Hospitalization)
  Sender: FDA-Public Use
  Company Number: 2009BH011147

PATIENT
  Age: 48 Year
  Sex: Female

DRUGS (12)
  1. DIANEAL [Suspect]
     Indication: PERITONEAL DIALYSIS
     Dosage: EVERY DAY, IP
     Route: 033
     Dates: start: 20080101, end: 20090601
  2. NICARDIPINE HYDROCHLORIDE [Concomitant]
  3. ARANESP [Concomitant]
  4. PHENOBARBITAL TAB [Concomitant]
  5. GEMFIBROZIL [Concomitant]
  6. RENAGEL [Concomitant]
  7. NEPHRO-VITE RX [Concomitant]
  8. GENTAMICIN [Concomitant]
  9. PANTOPRAZOLE [Concomitant]
  10. MAGENSIUM OXIDE [Concomitant]
  11. IRON [Concomitant]
  12. ZEMPLAR [Concomitant]

REACTIONS (2)
  - MEDICAL DEVICE COMPLICATION [None]
  - PERITONITIS [None]
